FAERS Safety Report 15275040 (Version 2)
Quarter: 2018Q3

REPORT INFORMATION
  Report Type: Spontaneous
  Country: US (occurrence: US)
  Receive Date: 20180814
  Receipt Date: 20180911
  Transmission Date: 20181010
  Serious: No
  Sender: FDA-Public Use
  Company Number: US-PFIZER INC-2018321861

PATIENT
  Age: 76 Year
  Sex: Female
  Weight: 49.89 kg

DRUGS (12)
  1. TRAMADOL HCL [Concomitant]
     Active Substance: TRAMADOL HYDROCHLORIDE
     Indication: PAIN
     Dosage: 50 MG, AS NEEDED, (EVERY 6 HRS)
     Route: 048
  2. RITUXIMAB. [Concomitant]
     Active Substance: RITUXIMAB
     Dosage: UNK (CONCENTRATE 1000 MG)
  3. FERROUS SULFATE. [Concomitant]
     Active Substance: FERROUS SULFATE
     Dosage: 325 MG, 1X/DAY
  4. CANDESARTAN CILEXETIL. [Concomitant]
     Active Substance: CANDESARTAN CILEXETIL
     Dosage: 32 MG, 1X/DAY
  5. METHOTREXATE SODIUM. [Suspect]
     Active Substance: METHOTREXATE SODIUM
     Indication: RHEUMATOID ARTHRITIS
     Dosage: UNK
  6. RESTASIS [Concomitant]
     Active Substance: CYCLOSPORINE
     Dosage: UNK, 2X/DAY
  7. CALCIUM [Concomitant]
     Active Substance: CALCIUM
     Dosage: 500 MG, 2X/DAY (1 TABLET AFTER MEALS)
  8. VITAMIN D [Concomitant]
     Active Substance: CHOLECALCIFEROL
     Dosage: 2000 IU, UNK, (D 2000 UNIT TABLET AS DIRECTED)
  9. CELEBREX [Concomitant]
     Active Substance: CELECOXIB
     Dosage: 200 MG, 1X/DAY
  10. ALEVE [Concomitant]
     Active Substance: NAPROXEN SODIUM
     Dosage: 220 MG, AS NEEDED (EVERY 12 HRS)
     Route: 048
  11. HYDROCODONE?ACETAMINOPHEN [Concomitant]
     Active Substance: ACETAMINOPHEN\HYDROCODONE
     Dosage: UNK, AS NEEDED [HYDROCODONE 5 MG]/ [ACETAMINOPHEN 325 MG], (1 TABLET AS NEEDED EVERY 6
  12. REFRESH [POLYVINYL ALCOHOL;POVIDONE] [Concomitant]
     Dosage: AS DIRECTED

REACTIONS (8)
  - Weight decreased [Unknown]
  - Metatarsalgia [Unknown]
  - Cough [Unknown]
  - Arthralgia [Unknown]
  - Infection [Unknown]
  - Alopecia [Unknown]
  - Drug intolerance [Unknown]
  - Drug ineffective [Unknown]
